FAERS Safety Report 4631857-7 (Version None)
Quarter: 2005Q2

REPORT INFORMATION
  Report Type: 
  Country: None (occurrence: None)
  Receive Date: 20050404
  Receipt Date: 20050223
  Transmission Date: 20051028
  Serious: No
  Sender: FDA-Public Use
  Company Number: 05H-163-0290579-00

PATIENT
  Age: 70 Year
  Sex: Female
  Weight: 39.9165 kg

DRUGS (2)
  1. MIDAZOLAM HYDROCHLORIDE INJECTION, PRESERVATIVE FREE VIAL(MIDAZOLAM HY [Suspect]
     Indication: SEDATION
     Dosage: 2 MG, SINGLE DOSE, INTRAVENOUS
     Route: 042
     Dates: start: 20050121, end: 20050121
  2. EYE DROPS [Concomitant]

REACTIONS (5)
  - DISORIENTATION [None]
  - DRUG EFFECT DECREASED [None]
  - DYSARTHRIA [None]
  - DYSSTASIA [None]
  - HALLUCINATION, VISUAL [None]
